FAERS Safety Report 5484887-X (Version None)
Quarter: 2007Q4

REPORT INFORMATION
  Report Type: 
  Country: None (occurrence: None)
  Receive Date: 20071010
  Receipt Date: 20071002
  Transmission Date: 20080405
  Serious: Yes (Other)
  Sender: FDA-Public Use
  Company Number: 2007SP010535

PATIENT
  Age: 42 Year
  Sex: Female

DRUGS (1)
  1. TEMODAL [Suspect]
     Indication: METASTASIS
     Dosage: 150 MG/M2; ;PO
     Route: 048
     Dates: start: 20070402, end: 20070601

REACTIONS (4)
  - ALANINE AMINOTRANSFERASE INCREASED [None]
  - ASPARTATE AMINOTRANSFERASE INCREASED [None]
  - METASTASES TO CENTRAL NERVOUS SYSTEM [None]
  - OVERDOSE [None]
